FAERS Safety Report 19251961 (Version 1)
Quarter: 2021Q2

REPORT INFORMATION
  Report Type: Spontaneous
  Country: US (occurrence: US)
  Receive Date: 20210513
  Receipt Date: 20210513
  Transmission Date: 20210717
  Serious: Yes (Life-Threatening)
  Sender: FDA-Public Use
  Company Number: US-PFIZER INC-2021495158

PATIENT
  Age: 49 Year
  Sex: Female

DRUGS (2)
  1. NOREPINEPHRINE BITARTRATE. [Suspect]
     Active Substance: NOREPINEPHRINE BITARTRATE
     Indication: SEPTIC SHOCK
     Dosage: UNK (8?12 UG/MIN; INITIAL IV INFUSION)
     Route: 042
  2. NOREPINEPHRINE BITARTRATE. [Suspect]
     Active Substance: NOREPINEPHRINE BITARTRATE
     Dosage: UNK (2?4 UG/MIN; MAINTENANCE IV INFUSION)
     Route: 042

REACTIONS (2)
  - Peripheral ischaemia [Unknown]
  - Dry gangrene [Unknown]
